FAERS Safety Report 5963354-0 (Version None)
Quarter: 2008Q4

REPORT INFORMATION
  Report Type: 
  Country: None (occurrence: None)
  Receive Date: 20081124
  Receipt Date: 20081117
  Transmission Date: 20090506
  Serious: Yes (Death)
  Sender: FDA-Public Use
  Company Number: A0757780A

PATIENT
  Age: 62 Year
  Sex: Female

DRUGS (7)
  1. AVANDIA [Suspect]
     Dosage: 8MG PER DAY
     Route: 048
     Dates: start: 20050101, end: 20060922
  2. ATENOLOL [Concomitant]
  3. LENTE [Concomitant]
  4. HUMULIN [Concomitant]
  5. ACTONEL [Concomitant]
  6. FEMARA [Concomitant]
  7. OXYCODONE HCL [Concomitant]

REACTIONS (1)
  - MYOCARDIAL INFARCTION [None]
